FAERS Safety Report 23105730 (Version 6)
Quarter: 2024Q2

REPORT INFORMATION
  Report Type: Spontaneous
  Country: US (occurrence: US)
  Receive Date: 20231025
  Receipt Date: 20240626
  Transmission Date: 20240716
  Serious: No
  Sender: FDA-Public Use
  Company Number: US-SA-SAC20231020000132

PATIENT
  Age: 12 Year
  Sex: Male

DRUGS (45)
  1. DUPIXENT [Suspect]
     Active Substance: DUPILUMAB
     Indication: Asthma
     Dosage: 300 MG, QOW
     Route: 058
     Dates: start: 20230628
  2. ADVAIR HFA [Concomitant]
     Active Substance: FLUTICASONE PROPIONATE\SALMETEROL XINAFOATE
  3. ADVAIR HFA [Concomitant]
     Active Substance: FLUTICASONE PROPIONATE\SALMETEROL XINAFOATE
  4. ALBUTEROL SULFATE [Concomitant]
     Active Substance: ALBUTEROL SULFATE
  5. ALBUTEROL SULFATE [Concomitant]
     Active Substance: ALBUTEROL SULFATE
  6. AZELASTINE [Concomitant]
     Active Substance: AZELASTINE\AZELASTINE HYDROCHLORIDE
  7. AZELASTINE [Concomitant]
     Active Substance: AZELASTINE\AZELASTINE HYDROCHLORIDE
  8. AZITHROMYCIN [Concomitant]
     Active Substance: AZITHROMYCIN
  9. AZITHROMYCIN [Concomitant]
     Active Substance: AZITHROMYCIN
  10. BUSPIRONE [Concomitant]
     Active Substance: BUSPIRONE HYDROCHLORIDE
  11. BUSPIRONE [Concomitant]
     Active Substance: BUSPIRONE HYDROCHLORIDE
  12. CALCIUM [Concomitant]
     Active Substance: CALCIUM
  13. CALCIUM [Concomitant]
     Active Substance: CALCIUM
  14. FLUTICASONE [Concomitant]
     Active Substance: FLUTICASONE
  15. FLUTICASONE [Concomitant]
     Active Substance: FLUTICASONE
  16. FOLIC ACID [Concomitant]
     Active Substance: FOLIC ACID
  17. FOLIC ACID [Concomitant]
     Active Substance: FOLIC ACID
  18. HIZENTRA [Concomitant]
     Active Substance: HUMAN IMMUNOGLOBULIN G
  19. HIZENTRA [Concomitant]
     Active Substance: HUMAN IMMUNOGLOBULIN G
  20. PATADAY [Concomitant]
     Active Substance: OLOPATADINE HYDROCHLORIDE
  21. PATADAY [Concomitant]
     Active Substance: OLOPATADINE HYDROCHLORIDE
  22. SINGULAIR [Concomitant]
     Active Substance: MONTELUKAST SODIUM
  23. SINGULAIR [Concomitant]
     Active Substance: MONTELUKAST SODIUM
  24. VITAMIN C [Concomitant]
     Active Substance: ASCORBIC ACID
  25. VITAMIN C [Concomitant]
     Active Substance: ASCORBIC ACID
  26. VITAMIN D3 [Concomitant]
     Active Substance: CHOLECALCIFEROL
  27. VITAMIN D3 [Concomitant]
     Active Substance: CHOLECALCIFEROL
  28. ZYRTEC [Concomitant]
     Active Substance: CETIRIZINE HYDROCHLORIDE
  29. ZYRTEC [Concomitant]
     Active Substance: CETIRIZINE HYDROCHLORIDE
  30. AUVI-Q [Concomitant]
     Active Substance: EPINEPHRINE
  31. AUVI-Q [Concomitant]
     Active Substance: EPINEPHRINE
  32. HYDROXYZINE HYDROCHLORIDE [Concomitant]
     Active Substance: HYDROXYZINE HYDROCHLORIDE
  33. HYDROXYZINE HYDROCHLORIDE [Concomitant]
     Active Substance: HYDROXYZINE HYDROCHLORIDE
  34. CHILDREN^S MULTIVITAMIN [Concomitant]
  35. CORTICOSTEROID NOS [Concomitant]
     Active Substance: CORTICOSTEROID NOS
  36. ALBUTEROL [Concomitant]
     Active Substance: ALBUTEROL
  37. ALBUTEROL [Concomitant]
     Active Substance: ALBUTEROL
  38. VITAMINS NOS [Concomitant]
     Active Substance: VITAMINS
  39. VITAMINS NOS [Concomitant]
     Active Substance: VITAMINS
  40. SPIRIVA [Concomitant]
     Active Substance: TIOTROPIUM BROMIDE MONOHYDRATE
  41. BUDESONIDE [Concomitant]
     Active Substance: BUDESONIDE
  42. ONDANSETRON [Concomitant]
     Active Substance: ONDANSETRON
  43. PREDNISOLONE [Concomitant]
     Active Substance: PREDNISOLONE
  44. PULMICORT TURBUHALER [Concomitant]
     Active Substance: BUDESONIDE
  45. VITAMIN B12 [Concomitant]
     Active Substance: CYANOCOBALAMIN

REACTIONS (11)
  - Ear infection [Unknown]
  - Influenza [Unknown]
  - Sinusitis [Unknown]
  - Illness [Not Recovered/Not Resolved]
  - Infection [Recovered/Resolved]
  - Ocular discomfort [Recovered/Resolved]
  - Asthma [Recovered/Resolved]
  - Impaired quality of life [Recovered/Resolved]
  - Drug ineffective [Unknown]
  - Eye irritation [Recovered/Resolved]
  - COVID-19 [Not Recovered/Not Resolved]

NARRATIVE: CASE EVENT DATE: 20230101
